FAERS Safety Report 8575747-6 (Version None)
Quarter: 2012Q3

REPORT INFORMATION
  Report Type: 
  Country: None (occurrence: None)
  Receive Date: 20120807
  Receipt Date: 20120806
  Transmission Date: 20120928
  Serious: Yes (Hospitalization, Other)
  Sender: FDA-Public Use
  Company Number: PHHY2012AU047442

PATIENT
  Sex: Female

DRUGS (6)
  1. CLOZARIL [Suspect]
     Indication: SCHIZOPHRENIA
     Dosage: 200 MG, (50 MG MANE, 150 MG NOCTE)
     Route: 048
     Dates: start: 20120508, end: 20120523
  2. CLOZARIL [Suspect]
     Dosage: 250 MG,
     Route: 048
  3. CLOZARIL [Suspect]
     Dosage: 300 MG
     Route: 048
  4. VALPROATE SODIUM [Concomitant]
     Indication: AFFECTIVE DISORDER
     Dosage: 500 MG, BID
  5. LEVOTHYROXINE SODIUM [Concomitant]
     Indication: HYPOTHYROIDISM
     Dosage: 100 UG, QD
     Route: 048
  6. PALIPERIDONE [Concomitant]
     Indication: SCHIZOPHRENIA
     Dosage: 150 MG, (MONTHLY)
     Route: 030

REACTIONS (22)
  - LIVER FUNCTION TEST ABNORMAL [None]
  - SINUS TACHYCARDIA [None]
  - BLOOD UREA DECREASED [None]
  - PNEUMONIA [None]
  - ESCHERICHIA URINARY TRACT INFECTION [None]
  - ALANINE AMINOTRANSFERASE INCREASED [None]
  - ASPARTATE AMINOTRANSFERASE INCREASED [None]
  - EOSINOPHIL COUNT INCREASED [None]
  - BLOOD ALKALINE PHOSPHATASE INCREASED [None]
  - BLOOD PHOSPHORUS DECREASED [None]
  - PYREXIA [None]
  - ELECTROCARDIOGRAM QT PROLONGED [None]
  - BLOOD GLUCOSE INCREASED [None]
  - URINARY TRACT INFECTION [None]
  - TROPONIN INCREASED [None]
  - MALAISE [None]
  - DIARRHOEA [None]
  - GAMMA-GLUTAMYLTRANSFERASE INCREASED [None]
  - BLOOD LACTATE DEHYDROGENASE INCREASED [None]
  - PROTEIN TOTAL DECREASED [None]
  - LYMPHOCYTE COUNT DECREASED [None]
  - ANTIPSYCHOTIC DRUG LEVEL BELOW THERAPEUTIC [None]
